FAERS Safety Report 4732167-X (Version None)
Quarter: 2005Q3

REPORT INFORMATION
  Report Type: 
  Country: None (occurrence: None)
  Receive Date: 20050725
  Receipt Date: 20031201
  Transmission Date: 20060218
  Serious: Yes (Death)
  Sender: FDA-Public Use
  Company Number: USA-2003-0011260

PATIENT
  Age: 52 Year
  Sex: Female
  Weight: 74.4 kg

DRUGS (4)
  1. MORPHINE SULFATE [Suspect]
     Dosage: UNG MG, UNK, UNKNOWN
     Route: 065
  2. SERTRALINE HCL [Suspect]
     Route: 065
  3. FENTANYL [Suspect]
     Route: 065
  4. CAFFEINE (CAFFEINE) [Suspect]
     Route: 065

REACTIONS (2)
  - ACCIDENTAL OVERDOSE [None]
  - MULTIPLE DRUG OVERDOSE [None]
